FAERS Safety Report 9026208 (Version 2)
Quarter: 2013Q1

REPORT INFORMATION
  Report Type: Spontaneous
  Country: US (occurrence: None)
  Receive Date: 20130104
  Receipt Date: 20130328
  Transmission Date: 20140127
  Serious: Yes (Death, Other)
  Sender: FDA-Public Use
  Company Number: TPA2012A11951

PATIENT
  Age: 72 Year
  Sex: Male

DRUGS (4)
  1. ACTOS (PIOGLITAZONE HYDROCHLORIDE) [Suspect]
     Indication: TYPE 2 DIABETES MELLITUS
     Dates: start: 201108, end: 20120503
  2. METFORMIN (METFORMIN) [Concomitant]
  3. GLUCOTROL (GLIPIZIDE) [Concomitant]
  4. AVANDIA (ROSIGLITAZONE MALEATE) [Concomitant]

REACTIONS (1)
  - Bladder cancer [None]
